FAERS Safety Report 21722575 (Version 1)
Quarter: 2022Q4

REPORT INFORMATION
  Report Type: Spontaneous
  Country: US (occurrence: US)
  Receive Date: 20221213
  Receipt Date: 20221213
  Transmission Date: 20230112
  Serious: Yes (Other)
  Sender: FDA-Public Use
  Company Number: US-PFIZER INC-PV202200120864

PATIENT
  Age: 71 Year
  Sex: Male

DRUGS (1)
  1. BRAFTOVI [Suspect]
     Active Substance: ENCORAFENIB
     Indication: Neoplasm malignant
     Dosage: 75 MG

REACTIONS (4)
  - Hypervolaemia [Unknown]
  - Weight decreased [Unknown]
  - Abdominal distension [Unknown]
  - Eating disorder [Unknown]
